FAERS Safety Report 8225335-6 (Version None)
Quarter: 2012Q1

REPORT INFORMATION
  Report Type: 
  Country: None (occurrence: None)
  Receive Date: 20120321
  Receipt Date: 20120316
  Transmission Date: 20120608
  Serious: Yes (Other)
  Sender: FDA-Public Use
  Company Number: JP-GLAXOSMITHKLINE-B0775031A

PATIENT
  Age: 9 Decade
  Sex: Male

DRUGS (2)
  1. CABERGOLINE [Concomitant]
     Route: 048
  2. REQUIP [Suspect]
     Indication: PRODUCT USED FOR UNKNOWN INDICATION
     Route: 048
     Dates: start: 20080101

REACTIONS (2)
  - PLEURISY [None]
  - PLEURAL EFFUSION [None]
